FAERS Safety Report 20395480 (Version 2)
Quarter: 2022Q1

REPORT INFORMATION
  Report Type: Report from Study
  Country: US (occurrence: US)
  Receive Date: 20220130
  Receipt Date: 20220202
  Transmission Date: 20220423
  Serious: Yes (Death)
  Sender: FDA-Public Use
  Company Number: US-BAUSCH-BL-2022-002769

PATIENT
  Age: 69 Year
  Sex: Female

DRUGS (2)
  1. XIFAXAN [Suspect]
     Active Substance: RIFAXIMIN
     Indication: Hepatic encephalopathy
     Dosage: SOMETIME IN APR/2018 OR MAY/2018
     Route: 048
     Dates: start: 2018
  2. XIFAXAN [Suspect]
     Active Substance: RIFAXIMIN
     Dosage: TOOK 1 A DAY EVERY NOW AND THEN
     Route: 048

REACTIONS (3)
  - Septic shock [Fatal]
  - Nausea [Unknown]
  - Treatment noncompliance [Unknown]

NARRATIVE: CASE EVENT DATE: 20210101
